FAERS Safety Report 7509542-3 (Version None)
Quarter: 2011Q2

REPORT INFORMATION
  Report Type: 
  Country: None (occurrence: None)
  Receive Date: 20110519
  Receipt Date: 20110505
  Transmission Date: 20111010
  Serious: Yes (Hospitalization, Other)
  Sender: FDA-Public Use
  Company Number: 2011MA005427

PATIENT
  Age: 17 Year
  Sex: Female

DRUGS (2)
  1. VERAPAMIL HCL [Suspect]
     Indication: SUICIDE ATTEMPT
     Dosage: 2400 MG
  2. METOPROLOL TARTRATE [Suspect]
     Dosage: 500 MG

REACTIONS (33)
  - METABOLIC ACIDOSIS [None]
  - HYPERGLYCAEMIA [None]
  - DIZZINESS [None]
  - MIOSIS [None]
  - APNOEA [None]
  - ANURIA [None]
  - BLOOD UREA INCREASED [None]
  - HYPOTONIA [None]
  - PUPILLARY REFLEX IMPAIRED [None]
  - INTERNATIONAL NORMALISED RATIO INCREASED [None]
  - COMA [None]
  - CARDIOGENIC SHOCK [None]
  - HYPERKALAEMIA [None]
  - ALANINE AMINOTRANSFERASE INCREASED [None]
  - HEPATIC FUNCTION ABNORMAL [None]
  - GLUCOSE URINE PRESENT [None]
  - VENTRICULAR FIBRILLATION [None]
  - ASPARTATE AMINOTRANSFERASE INCREASED [None]
  - VENTRICULAR HYPOKINESIA [None]
  - PULMONARY OEDEMA [None]
  - COLD SWEAT [None]
  - BRADYCARDIA [None]
  - HYPOPERFUSION [None]
  - BLOOD GLUCOSE INCREASED [None]
  - NAUSEA [None]
  - SUICIDE ATTEMPT [None]
  - MULTIPLE DRUG OVERDOSE INTENTIONAL [None]
  - HEART RATE INCREASED [None]
  - PALLOR [None]
  - SELF-MEDICATION [None]
  - PROTEIN URINE PRESENT [None]
  - SOMNOLENCE [None]
  - BLOOD CREATININE INCREASED [None]
